FAERS Safety Report 9048962 (Version 1)
Quarter: 2013Q1

REPORT INFORMATION
  Report Type: Spontaneous
  Country: US (occurrence: None)
  Receive Date: 20130116
  Receipt Date: 20130116
  Transmission Date: 20140127
  Serious: Yes (Other)
  Sender: FDA-Public Use
  Company Number: 2013SA002184

PATIENT
  Age: 37 Year
  Sex: Male

DRUGS (1)
  1. ICY HOT CREAM / UNKNOWN / UNKNOWN [Suspect]
     Indication: LIGAMENT SPRAIN
     Route: 061
     Dates: start: 20130105, end: 20130105

REACTIONS (2)
  - Burns second degree [None]
  - Chemical injury [None]
